FAERS Safety Report 10229359 (Version 1)
Quarter: 2014Q2

REPORT INFORMATION
  Report Type: Spontaneous
  Country: US (occurrence: US)
  Receive Date: 20140611
  Receipt Date: 20140611
  Transmission Date: 20141212
  Serious: No
  Sender: FDA-Public Use
  Company Number: US-B.I. PHARMACEUTICALS,INC./RIDGEFIELD-2014-BI-24578BP

PATIENT
  Age: 49 Year
  Sex: Female

DRUGS (2)
  1. SPIRIVA [Suspect]
     Indication: CHRONIC OBSTRUCTIVE PULMONARY DISEASE
     Route: 055
     Dates: start: 201309
  2. SPIRIVA [Suspect]
     Route: 048
     Dates: start: 201309

REACTIONS (2)
  - Incorrect route of drug administration [Recovered/Resolved]
  - Overdose [Unknown]
